FAERS Safety Report 25581600 (Version 1)
Quarter: 2025Q3

REPORT INFORMATION
  Report Type: Spontaneous
  Country: US (occurrence: None)
  Receive Date: 20250719
  Receipt Date: 20250719
  Transmission Date: 20251020
  Serious: No
  Sender: AXSOME THERAPEUTICS, INC.
  Company Number: US-Axsome Therapeutics, Inc.-AXS202506-001122

PATIENT
  Sex: Female
  Weight: 77.11 kg

DRUGS (3)
  1. AUVELITY [Suspect]
     Active Substance: BUPROPION HYDROCHLORIDE\DEXTROMETHORPHAN HYDROBROMIDE
     Indication: Major depression
     Route: 048
  2. OMEPRAZOLE [Concomitant]
     Active Substance: OMEPRAZOLE
     Indication: Product used for unknown indication
     Route: 065
  3. KETAMINE [Concomitant]
     Active Substance: KETAMINE
     Indication: Depression
     Route: 065

REACTIONS (10)
  - Swollen tongue [Unknown]
  - Oropharyngeal pain [Unknown]
  - Tongue disorder [Unknown]
  - Hair disorder [Unknown]
  - Frequent bowel movements [Unknown]
  - Hyperhidrosis [Unknown]
  - Product physical issue [Unknown]
  - Product container issue [Unknown]
  - Poor quality product administered [Unknown]
  - Product dose omission issue [Unknown]
